FAERS Safety Report 5761156-1 (Version None)
Quarter: 2008Q2

REPORT INFORMATION
  Report Type: 
  Country: None (occurrence: None)
  Receive Date: 20080606
  Receipt Date: 20080528
  Transmission Date: 20081010
  Serious: Yes (Other)
  Sender: FDA-Public Use
  Company Number: B0376988A

PATIENT
  Age: 18 Year
  Sex: Female

DRUGS (4)
  1. PAROXETINE HCL [Suspect]
     Route: 065
     Dates: start: 19990921, end: 20021001
  2. VENLAFAXINE HYDROCHLORIDE [Suspect]
     Dates: start: 20021018
  3. ZOPICLONE [Concomitant]
  4. VALERIAN [Concomitant]

REACTIONS (13)
  - ANXIETY [None]
  - DEPRESSED MOOD [None]
  - DEPRESSION [None]
  - EARLY MORNING AWAKENING [None]
  - INTENTIONAL OVERDOSE [None]
  - NEGATIVISM [None]
  - PERSONALITY DISORDER [None]
  - POOR QUALITY SLEEP [None]
  - SELF-INJURIOUS IDEATION [None]
  - SOCIAL AVOIDANT BEHAVIOUR [None]
  - SUICIDAL IDEATION [None]
  - TEARFULNESS [None]
  - WITHDRAWAL SYNDROME [None]
